FAERS Safety Report 13484980 (Version 1)
Quarter: 2017Q2

REPORT INFORMATION
  Report Type: Spontaneous
  Country: US (occurrence: US)
  Receive Date: 20170425
  Receipt Date: 20170425
  Transmission Date: 20170830
  Serious: No
  Sender: FDA-Public Use
  Company Number: US-ASTRAZENECA-2017SE41967

PATIENT
  Age: 29300 Day
  Sex: Female
  Weight: 53.1 kg

DRUGS (12)
  1. BEVESPI AEROSPHERE [Suspect]
     Active Substance: FORMOTEROL FUMARATE\GLYCOPYRROLATE
     Indication: CHRONIC OBSTRUCTIVE PULMONARY DISEASE
     Dosage: 9/4.8 MCG, TWO PUFFS TWICE PER DAY
     Route: 055
     Dates: start: 20170418
  2. BISTOLIC [Concomitant]
     Indication: BLOOD PRESSURE ABNORMAL
     Route: 055
  3. VITAMIN B12 [Concomitant]
     Active Substance: CYANOCOBALAMIN
     Indication: SUPPLEMENTATION THERAPY
     Route: 048
  4. PROAIR HFA [Concomitant]
     Active Substance: ALBUTEROL SULFATE
     Indication: CHRONIC OBSTRUCTIVE PULMONARY DISEASE
     Dosage: AT NIGHT
     Route: 055
  5. MUPIROCIN. [Concomitant]
     Active Substance: MUPIROCIN
     Indication: LOCALISED INFECTION
     Route: 061
  6. ASPIRIN. [Concomitant]
     Active Substance: ASPIRIN
     Route: 048
  7. CRANBERRY. [Concomitant]
     Active Substance: CRANBERRY
     Route: 048
  8. TUMERIC [Concomitant]
     Active Substance: HERBALS\TURMERIC
     Dosage: DAILY
     Route: 048
  9. FLAXSEED [Concomitant]
     Active Substance: FLAX SEED
     Indication: SUPPLEMENTATION THERAPY
     Dosage: THREE TIMES A DAY
     Route: 048
  10. MIRTAZAPINE. [Concomitant]
     Active Substance: MIRTAZAPINE
     Indication: BLOOD PRESSURE ABNORMAL
     Route: 048
  11. ALPRAZOLAM. [Concomitant]
     Active Substance: ALPRAZOLAM
     Dosage: 0.5MG AS REQUIRED
     Route: 048
  12. CITRACAL [Concomitant]
     Active Substance: CALCIUM CITRATE
     Dosage: 2, DAILY
     Route: 048

REACTIONS (3)
  - Dyspnoea [Unknown]
  - Feeling abnormal [Unknown]
  - Dysuria [Unknown]

NARRATIVE: CASE EVENT DATE: 20170419
